FAERS Safety Report 21864558 (Version 5)
Quarter: 2023Q1

REPORT INFORMATION
  Report Type: Spontaneous
  Country: MT (occurrence: MT)
  Receive Date: 20230116
  Receipt Date: 20230127
  Transmission Date: 20230418
  Serious: Yes (Death, Disabling, Other)
  Sender: FDA-Public Use
  Company Number: MT-BRISTOL-MYERS SQUIBB COMPANY-2023-005991

PATIENT
  Age: 66 Year
  Sex: Male
  Weight: 80 kg

DRUGS (1)
  1. OPDIVO [Suspect]
     Active Substance: NIVOLUMAB
     Indication: Malignant melanoma
     Dosage: 100MG VIALS?40MG VIALS
     Route: 042
     Dates: start: 20210517, end: 20210809

REACTIONS (4)
  - Scleroderma [Not Recovered/Not Resolved]
  - Malignant neoplasm progression [Fatal]
  - Condition aggravated [Not Recovered/Not Resolved]
  - Peripheral sensory neuropathy [Not Recovered/Not Resolved]

NARRATIVE: CASE EVENT DATE: 20210101
